FAERS Safety Report 7960662-9 (Version None)
Quarter: 2011Q4

REPORT INFORMATION
  Report Type: 
  Country: None (occurrence: None)
  Receive Date: 20111206
  Receipt Date: 20111123
  Transmission Date: 20120403
  Serious: Yes (Other)
  Sender: FDA-Public Use
  Company Number: PT-MYLANLABS-2011S1024613

PATIENT
  Age: 70 Year
  Sex: Female

DRUGS (3)
  1. KETOCONAZOLE [Suspect]
     Indication: SKIN LESION
     Route: 065
  2. CYCLOSPORINE [Interacting]
     Indication: SKIN LESION
     Route: 065
  3. SIMVASTATIN [Interacting]
     Route: 065

REACTIONS (5)
  - LIVER DISORDER [None]
  - RHABDOMYOLYSIS [None]
  - RENAL FAILURE ACUTE [None]
  - NEUROTOXICITY [None]
  - DRUG INTERACTION [None]
